FAERS Safety Report 20879431 (Version 10)
Quarter: 2024Q2

REPORT INFORMATION
  Report Type: Report from Study
  Country: US (occurrence: US)
  Receive Date: 20220526
  Receipt Date: 20240403
  Transmission Date: 20240716
  Serious: Yes (Hospitalization, Other)
  Sender: FDA-Public Use
  Company Number: US-ABBVIE-22K-163-4409208-00

PATIENT
  Sex: Female

DRUGS (10)
  1. IMBRUVICA [Suspect]
     Active Substance: IBRUTINIB
     Indication: Chronic lymphocytic leukaemia
     Route: 048
  2. IMBRUVICA [Suspect]
     Active Substance: IBRUTINIB
     Indication: Chronic lymphocytic leukaemia
     Dosage: BACK UP TO 3 CAPSULES
     Route: 048
  3. IMBRUVICA [Suspect]
     Active Substance: IBRUTINIB
     Indication: Chronic lymphocytic leukaemia
     Dosage: LAST ADMIN DATE: 2018, 3 CAPSULE PER DAY OF 140 MG
     Route: 048
     Dates: start: 201801
  4. RESTASIS [Concomitant]
     Active Substance: CYCLOSPORINE
     Indication: Product used for unknown indication
  5. METROGEL [Concomitant]
     Active Substance: METRONIDAZOLE
     Indication: Product used for unknown indication
  6. TRIAMCINOLONE [Concomitant]
     Active Substance: TRIAMCINOLONE
     Indication: Product used for unknown indication
  7. HERBALS\TURMERIC [Concomitant]
     Active Substance: HERBALS\TURMERIC
     Indication: Product used for unknown indication
  8. SUCRALFATE [Concomitant]
     Active Substance: SUCRALFATE
     Indication: Product used for unknown indication
  9. CEFUROXIME [Suspect]
     Active Substance: CEFUROXIME
     Indication: Product used for unknown indication
     Route: 065
     Dates: start: 20230503
  10. LENALIDOMIDE [Concomitant]
     Active Substance: LENALIDOMIDE
     Indication: Product used for unknown indication

REACTIONS (17)
  - Hernia [Unknown]
  - Myelodysplastic syndrome [Not Recovered/Not Resolved]
  - Pruritus [Unknown]
  - Oxygen saturation decreased [Unknown]
  - Haemoglobin decreased [Recovering/Resolving]
  - Stress [Unknown]
  - Dry throat [Unknown]
  - Petechiae [Unknown]
  - Onychoclasis [Unknown]
  - Staphylococcal skin infection [Unknown]
  - Urinary tract infection staphylococcal [Unknown]
  - Hypotension [Unknown]
  - Oral candidiasis [Unknown]
  - Dyspnoea [Recovering/Resolving]
  - Oropharyngeal candidiasis [Unknown]
  - Dry skin [Unknown]
  - Pneumonitis [Recovering/Resolving]

NARRATIVE: CASE EVENT DATE: 20230101
